FAERS Safety Report 5598705-2 (Version None)
Quarter: 2008Q1

REPORT INFORMATION
  Report Type: 
  Country: None (occurrence: None)
  Receive Date: 20080117
  Receipt Date: 20080108
  Transmission Date: 20080703
  Serious: Yes (Life-Threatening)
  Sender: FDA-Public Use
  Company Number: E2090-00373-SPO-JP

PATIENT
  Age: 17 Year
  Sex: Male

DRUGS (4)
  1. ZONISAMIDE [Suspect]
     Indication: EPILEPSY
     Dosage: 200 MG, ORAL
     Route: 048
     Dates: start: 20070502, end: 20070609
  2. TEGRETOL [Suspect]
     Indication: EPILEPSY
     Dosage: 0.4 GM, ORAL
     Route: 048
     Dates: start: 20070530, end: 20070630
  3. AMOXICILLIN [Suspect]
     Indication: LARYNGITIS
     Dosage: ORAL
     Route: 048
     Dates: start: 20070603, end: 20070603
  4. AMOXICILLIN [Suspect]
     Indication: PHARYNGITIS
     Dosage: ORAL
     Route: 048
     Dates: start: 20070603, end: 20070603

REACTIONS (7)
  - ADENOIDITIS [None]
  - DRUG RASH WITH EOSINOPHILIA AND SYSTEMIC SYMPTOMS [None]
  - ENANTHEMA [None]
  - GENITAL EROSION [None]
  - GENITAL ULCERATION [None]
  - MOUTH ULCERATION [None]
  - ORAL MUCOSA EROSION [None]
